FAERS Safety Report 7216616-3 (Version None)
Quarter: 2011Q1

REPORT INFORMATION
  Report Type: 
  Country: None (occurrence: None)
  Receive Date: 20110110
  Receipt Date: 20101229
  Transmission Date: 20110831
  Serious: No
  Sender: FDA-Public Use
  Company Number: US-BIOGENIDEC-2010BI028837

PATIENT
  Sex: Female

DRUGS (1)
  1. TYSABRI [Suspect]
     Indication: MULTIPLE SCLEROSIS
     Route: 042
     Dates: start: 20100519

REACTIONS (12)
  - SWELLING FACE [None]
  - EAR PAIN [None]
  - ELECTROCARDIOGRAM ABNORMAL [None]
  - FATIGUE [None]
  - MIDDLE EAR EFFUSION [None]
  - HYPERTHYROIDISM [None]
  - CORONARY ARTERY OCCLUSION [None]
  - STRESS [None]
  - RASH PAPULAR [None]
  - NERVOUSNESS [None]
  - NECK PAIN [None]
  - RASH [None]
